FAERS Safety Report 7604397-0 (Version None)
Quarter: 2011Q3

REPORT INFORMATION
  Report Type: 
  Country: None (occurrence: None)
  Receive Date: 20110712
  Receipt Date: 20110711
  Transmission Date: 20111222
  Serious: Yes (Hospitalization)
  Sender: FDA-Public Use
  Company Number: SE-BRISTOL-MYERS SQUIBB COMPANY-15836943

PATIENT
  Age: 45 Year
  Sex: Male

DRUGS (5)
  1. PULMICORT [Concomitant]
     Dosage: PRESSURIZED INHALATION, SUSPENSION
     Route: 055
  2. IMOVANE [Concomitant]
     Dosage: TAB
  3. HYDREA [Suspect]
     Route: 048
     Dates: start: 20110516, end: 20110531
  4. BRICANYL [Concomitant]
     Dosage: SOLUTION FOR INJECTION/CONCENTRATE FOR SOLUTION FOR INFUSION
  5. CONCERTA [Concomitant]
     Dosage: PROLONGED-RELEASE TABLET

REACTIONS (1)
  - PYODERMA GANGRENOSUM [None]
